FAERS Safety Report 7160526-7 (Version None)
Quarter: 2010Q4

REPORT INFORMATION
  Report Type: 
  Country: None (occurrence: None)
  Receive Date: 20101214
  Receipt Date: 20100324
  Transmission Date: 20110411
  Serious: Yes (Hospitalization)
  Sender: FDA-Public Use
  Company Number: US-AMGEN-QUU378791

PATIENT

DRUGS (9)
  1. ENBREL [Suspect]
     Indication: PSORIASIS
     Dosage: 50 MG, QWK
     Route: 058
     Dates: start: 20090701, end: 20091201
  2. QUETIAPINE FUMARATE [Concomitant]
  3. DICYCLOVERINE HYDROCHLORIDE [Concomitant]
  4. FLUOXETINE HYDROCHLORIDE [Concomitant]
  5. METFORMIN [Concomitant]
  6. FENTANYL [Concomitant]
  7. DOCUSATE SODIUM [Concomitant]
  8. SENNA [Concomitant]
  9. PANTOPRAZOLE SODIUM [Concomitant]

REACTIONS (4)
  - ABDOMINAL DISCOMFORT [None]
  - HODGKIN'S DISEASE [None]
  - PYREXIA [None]
  - WEIGHT DECREASED [None]
